FAERS Safety Report 11745878 (Version 7)
Quarter: 2016Q4

REPORT INFORMATION
  Report Type: Spontaneous
  Country: US (occurrence: US)
  Receive Date: 20151117
  Receipt Date: 20161216
  Transmission Date: 20170206
  Serious: Yes (Hospitalization, Congenital Anomaly, Other)
  Sender: FDA-Public Use
  Company Number: PHEH2015US023202

PATIENT
  Age: 8 Day
  Sex: Male

DRUGS (5)
  1. ONDANSETRON. [Suspect]
     Active Substance: ONDANSETRON
     Indication: FOETAL EXPOSURE DURING PREGNANCY
     Dosage: MOTHER DOSE: 08 MG, BID
     Route: 064
  2. ZOFRAN [Suspect]
     Active Substance: ONDANSETRON HYDROCHLORIDE
     Indication: FOETAL EXPOSURE DURING PREGNANCY
     Route: 064
  3. ONDANSETRON [Suspect]
     Active Substance: ONDANSETRON
     Indication: FOETAL EXPOSURE DURING PREGNANCY
     Dosage: MOTHER^S DOSE: 08 MG, UNK
     Route: 064
  4. ONDANSETRON [Suspect]
     Active Substance: ONDANSETRON
     Indication: FOETAL EXPOSURE DURING PREGNANCY
     Route: 064
  5. ONDANSETRON. [Suspect]
     Active Substance: ONDANSETRON
     Indication: FOETAL EXPOSURE DURING PREGNANCY
     Dosage: MOTHER DOSE: 8 MG, BID
     Route: 064

REACTIONS (29)
  - Ventricular hypoplasia [Unknown]
  - Acute left ventricular failure [Unknown]
  - Injury [Unknown]
  - Atrial septal defect [Unknown]
  - Cardiogenic shock [Unknown]
  - Atelectasis neonatal [Unknown]
  - Pulmonary congestion [Unknown]
  - Gastrooesophageal reflux disease [Unknown]
  - Ventricular septal defect [Unknown]
  - Neonatal respiratory distress syndrome [Unknown]
  - Selective eating disorder [Unknown]
  - Cardiomegaly [Unknown]
  - Otitis media [Unknown]
  - Congenital anomaly [Unknown]
  - Deep vein thrombosis [Unknown]
  - Anhedonia [Unknown]
  - Multiple cardiac defects [Unknown]
  - Cyanosis neonatal [Unknown]
  - Foetal exposure during pregnancy [Unknown]
  - Acute respiratory failure [Unknown]
  - Pain [Unknown]
  - Patent ductus arteriosus [Unknown]
  - Left-to-right cardiac shunt [Unknown]
  - Neonatal tachypnoea [Unknown]
  - Acute kidney injury [Unknown]
  - Anxiety [Unknown]
  - Heart disease congenital [Unknown]
  - Congenital mitral valve incompetence [Unknown]
  - Coarctation of the aorta [Unknown]

NARRATIVE: CASE EVENT DATE: 20150709
